FAERS Safety Report 10301137 (Version 1)
Quarter: 2014Q3

REPORT INFORMATION
  Report Type: Spontaneous
  Country: US (occurrence: None)
  Receive Date: 20140708
  Receipt Date: 20140708
  Transmission Date: 20150326
  Serious: Yes (Hospitalization)
  Sender: FDA-Public Use
  Company Number: None

PATIENT
  Age: 75 Year
  Sex: Female
  Weight: 72.3 kg

DRUGS (2)
  1. ROCEPHIN [Suspect]
     Active Substance: CEFTRIAXONE SODIUM
  2. VANCOMYCIN [Suspect]
     Active Substance: VANCOMYCIN

REACTIONS (6)
  - Diarrhoea [None]
  - Rash generalised [None]
  - Pyrexia [None]
  - Mouth ulceration [None]
  - Urticaria [None]
  - Ageusia [None]
